FAERS Safety Report 7032498-7 (Version None)
Quarter: 2010Q4

REPORT INFORMATION
  Report Type: 
  Country: None (occurrence: None)
  Receive Date: 20101007
  Receipt Date: 20100928
  Transmission Date: 20110411
  Serious: Yes (Hospitalization)
  Sender: FDA-Public Use
  Company Number: US-JNJFOC-20100908886

PATIENT
  Age: 12 Year
  Sex: Male
  Weight: 48.99 kg

DRUGS (2)
  1. CHILDREN'S MOTRIN [Suspect]
     Indication: OROPHARYNGEAL PAIN
     Dosage: 15 ML EVERY 7 HOURS
     Route: 048
  2. CHILDREN'S MOTRIN [Suspect]
     Indication: PYREXIA
     Dosage: 15 ML EVERY 7 HOURS
     Route: 048

REACTIONS (1)
  - STEVENS-JOHNSON SYNDROME [None]
